FAERS Safety Report 7164152-5 (Version None)
Quarter: 2010Q4

REPORT INFORMATION
  Report Type: 
  Country: None (occurrence: None)
  Receive Date: 20101215
  Receipt Date: 20101206
  Transmission Date: 20110411
  Serious: Yes (Other)
  Sender: FDA-Public Use
  Company Number: US-EISAI INC.-E3810-04298-SPO-US

PATIENT
  Sex: Female

DRUGS (1)
  1. ACIPHEX [Suspect]
     Dosage: UNKNOWN
     Route: 048

REACTIONS (11)
  - ABDOMINAL PAIN [None]
  - ARTHRALGIA [None]
  - DIARRHOEA [None]
  - DIZZINESS [None]
  - DRY EYE [None]
  - DRY MOUTH [None]
  - HEADACHE [None]
  - JOINT STIFFNESS [None]
  - LUNG INFECTION [None]
  - MYALGIA [None]
  - OEDEMA [None]
